FAERS Safety Report 16924271 (Version 1)
Quarter: 2019Q4

REPORT INFORMATION
  Report Type: Spontaneous
  Country: US (occurrence: US)
  Receive Date: 20190823
  Receipt Date: 20190823
  Transmission Date: 20200122
  Serious: Yes (Hospitalization)
  Sender: FDA-Public Use
  Company Number: None

PATIENT
  Age: 81 Year
  Sex: Male
  Weight: 108.32 kg

DRUGS (1)
  1. SULFAMETHOXAZOLE/TRIMETHOPRIM [Suspect]
     Active Substance: SULFAMETHOXAZOLE\TRIMETHOPRIM
     Indication: SINUSITIS
     Route: 048
     Dates: start: 20190821, end: 20190822

REACTIONS (8)
  - Throat irritation [None]
  - Rash [None]
  - Rash pruritic [None]
  - Dysphagia [None]
  - Gastrooesophageal reflux disease [None]
  - Sensation of foreign body [None]
  - Drug hypersensitivity [None]
  - Burning sensation [None]

NARRATIVE: CASE EVENT DATE: 20190822
